FAERS Safety Report 17024811 (Version 1)
Quarter: 2019Q4

REPORT INFORMATION
  Report Type: Report from Study
  Country: BE (occurrence: BE)
  Receive Date: 20191113
  Receipt Date: 20191113
  Transmission Date: 20200122
  Serious: Yes (Other)
  Sender: FDA-Public Use
  Company Number: PHHY2015BE041803

PATIENT
  Age: 41 Year
  Sex: Female

DRUGS (1)
  1. GILENYA [Suspect]
     Active Substance: FINGOLIMOD HYDROCHLORIDE
     Indication: MULTIPLE SCLEROSIS
     Dosage: UNK, QD
     Route: 048
     Dates: start: 20121218

REACTIONS (11)
  - Vitamin D deficiency [Unknown]
  - Restless legs syndrome [Unknown]
  - Lymphocyte count decreased [Unknown]
  - Bursitis [Recovered/Resolved]
  - Blood cholesterol increased [Unknown]
  - Osteoarthritis [Recovered/Resolved]
  - Lymphocyte count increased [Unknown]
  - Migraine [Unknown]
  - Overweight [Unknown]
  - White blood cell count decreased [Unknown]
  - Intervertebral disc protrusion [Unknown]

NARRATIVE: CASE EVENT DATE: 20140616
